FAERS Safety Report 5753646-2 (Version None)
Quarter: 2008Q2

REPORT INFORMATION
  Report Type: 
  Country: None (occurrence: None)
  Receive Date: 20080527
  Receipt Date: 20080507
  Transmission Date: 20081010
  Serious: Yes (Hospitalization)
  Sender: FDA-Public Use
  Company Number: 2008AL004130

PATIENT
  Age: 72 Year
  Sex: Female

DRUGS (5)
  1. DIGOXIN [Suspect]
     Dosage: 0.125MG DAILY PO
     Route: 048
  2. LASIX [Concomitant]
  3. POTASSIUM CHLORIDE [Concomitant]
  4. HUMULIN R [Concomitant]
  5. COUMADIN [Concomitant]

REACTIONS (4)
  - DIZZINESS [None]
  - HAEMORRHAGE [None]
  - HYPOTENSION [None]
  - RENAL FAILURE [None]
